FAERS Safety Report 8940020 (Version 1)
Quarter: 2012Q4

REPORT INFORMATION
  Report Type: 
  Country: BR (occurrence: BR)
  Receive Date: 20121130
  Receipt Date: 20121130
  Transmission Date: 20130627
  Serious: Yes (Other)
  Sender: FDA-Public Use
  Company Number: BR-ABBOTT-12P-020-1013870-00

PATIENT

DRUGS (3)
  1. HUMIRA [Suspect]
  2. ETANERCEPT [Suspect]
     Indication: PRODUCT USED FOR UNKNOWN INDICATION
     Dosage: Only one dose
  3. INFLIXIMAB [Suspect]
     Indication: PRODUCT USED FOR UNKNOWN INDICATION
     Dosage: 2 doses taken

REACTIONS (5)
  - Myelofibrosis [Unknown]
  - Rash [Unknown]
  - Anaemia [Unknown]
  - Thrombocytopenia [Unknown]
  - Drug ineffective [Unknown]
